FAERS Safety Report 21670317 (Version 4)
Quarter: 2023Q1

REPORT INFORMATION
  Report Type: Report from Study
  Country: US (occurrence: US)
  Receive Date: 20221201
  Receipt Date: 20230127
  Transmission Date: 20230418
  Serious: Yes (Hospitalization, Other)
  Sender: FDA-Public Use
  Company Number: US-ABBVIE-4183484

PATIENT
  Sex: Male
  Weight: 53.523 kg

DRUGS (8)
  1. RINVOQ [Suspect]
     Active Substance: UPADACITINIB
     Indication: Crohn^s disease
     Route: 048
     Dates: start: 202208, end: 202210
  2. RINVOQ [Suspect]
     Active Substance: UPADACITINIB
     Indication: Crohn^s disease
     Route: 048
     Dates: start: 202210
  3. RINVOQ [Suspect]
     Active Substance: UPADACITINIB
     Indication: Crohn^s disease
     Route: 048
     Dates: start: 202208
  4. ILARIS [Concomitant]
     Active Substance: CANAKINUMAB
     Indication: Crohn^s disease
     Route: 030
  5. SKYRIZI [Concomitant]
     Active Substance: RISANKIZUMAB-RZAA
     Indication: Colitis ulcerative
     Route: 065
  6. VITAMIN D [Concomitant]
     Active Substance: VITAMIN D NOS
     Indication: Vitamin supplementation
     Route: 065
  7. LEUCOVORIN [Concomitant]
     Active Substance: LEUCOVORIN
     Indication: Vitamin supplementation
     Route: 065
  8. JAKAFI [Concomitant]
     Active Substance: RUXOLITINIB
     Indication: Crohn^s disease
     Route: 065
     Dates: start: 202203

REACTIONS (24)
  - Abscess [Recovered/Resolved]
  - Abdominal pain [Recovering/Resolving]
  - Condition aggravated [Unknown]
  - Nausea [Unknown]
  - Insomnia [Recovered/Resolved]
  - Dehydration [Unknown]
  - Haemorrhoids [Recovered/Resolved]
  - Abdominal pain [Recovered/Resolved]
  - Vomiting [Unknown]
  - Sepsis [Unknown]
  - Pyrexia [Recovered/Resolved]
  - Rectal abscess [Recovering/Resolving]
  - Diarrhoea [Unknown]
  - Decreased appetite [Recovered/Resolved]
  - Fatigue [Not Recovered/Not Resolved]
  - Dehydration [Recovering/Resolving]
  - Haematochezia [Recovered/Resolved]
  - Loss of consciousness [Recovered/Resolved]
  - Haemoglobin decreased [Recovered/Resolved]
  - Flatulence [Unknown]
  - Proctalgia [Recovering/Resolving]
  - Defaecation urgency [Recovering/Resolving]
  - Mouth ulceration [Recovered/Resolved]
  - Fall [Unknown]

NARRATIVE: CASE EVENT DATE: 20220101
